FAERS Safety Report 15188314 (Version 1)
Quarter: 2018Q3

REPORT INFORMATION
  Report Type: Spontaneous
  Country: US (occurrence: US)
  Receive Date: 20180724
  Receipt Date: 20180724
  Transmission Date: 20181010
  Serious: No
  Sender: FDA-Public Use
  Company Number: US-ELI_LILLY_AND_COMPANY-US201807010188

PATIENT
  Age: 73 Year
  Sex: Female

DRUGS (1)
  1. VERZENIO [Suspect]
     Active Substance: ABEMACICLIB
     Indication: OSTEOPOROSIS
     Dosage: 150 MG, BID
     Route: 048
     Dates: start: 20180622

REACTIONS (5)
  - Diarrhoea [Unknown]
  - Abdominal pain [Unknown]
  - Nausea [Unknown]
  - Dysuria [Unknown]
  - Off label use [Unknown]

NARRATIVE: CASE EVENT DATE: 20180717
